FAERS Safety Report 5853946-1 (Version None)
Quarter: 2008Q3

REPORT INFORMATION
  Report Type: 
  Country: None (occurrence: None)
  Receive Date: 20080822
  Receipt Date: 20080812
  Transmission Date: 20090109
  Serious: Yes (Hospitalization)
  Sender: FDA-Public Use
  Company Number: B0532807A

PATIENT
  Age: 76 Year
  Sex: Male

DRUGS (8)
  1. ALKERAN [Suspect]
     Dosage: 4MG PER DAY
     Route: 048
     Dates: start: 20080516, end: 20080520
  2. PROPYL-THIOURACIL [Suspect]
     Dosage: 6UNIT PER DAY
     Route: 048
     Dates: start: 20080506
  3. ATARAX [Concomitant]
     Route: 065
  4. ACETAMINOPHEN [Concomitant]
     Route: 065
  5. MOTILIUM [Concomitant]
     Route: 065
  6. FORLAX [Concomitant]
     Route: 065
  7. XATRAL [Concomitant]
     Route: 065
  8. CORTANCYL [Concomitant]
     Dosage: 20MG PER DAY
     Route: 048
     Dates: start: 20080401

REACTIONS (3)
  - LEUKOPENIA [None]
  - LYMPHOPENIA [None]
  - PYREXIA [None]
